FAERS Safety Report 9125047 (Version 1)
Quarter: 2013Q1

REPORT INFORMATION
  Report Type: Spontaneous
  Country: US (occurrence: US)
  Receive Date: 20130117
  Receipt Date: 20130117
  Transmission Date: 20140127
  Serious: Yes (Death, Other)
  Sender: FDA-Public Use
  Company Number: US-UCBSA-075191

PATIENT
  Age: 29 Year
  Sex: Male

DRUGS (3)
  1. ALPRAZOLAM [Suspect]
     Route: 048
  2. METHADONE [Suspect]
     Route: 048
  3. DIAZEPAM [Suspect]
     Route: 048

REACTIONS (1)
  - Completed suicide [Fatal]
